FAERS Safety Report 5373449-0 (Version None)
Quarter: 2007Q2

REPORT INFORMATION
  Report Type: 
  Country: None (occurrence: None)
  Receive Date: 20070626
  Receipt Date: 20070626
  Transmission Date: 20071010
  Serious: No
  Sender: FDA-Public Use
  Company Number: None

PATIENT
  Age: 59 Year
  Sex: Male
  Weight: 61.6892 kg

DRUGS (1)
  1. PROPOFOL [Suspect]
     Indication: ANAESTHESIA
     Dosage: 600MG IV
     Route: 042
     Dates: start: 20061011

REACTIONS (2)
  - CHILLS [None]
  - POSTOPERATIVE FEVER [None]
